FAERS Safety Report 9122899 (Version 1)
Quarter: 2013Q1

REPORT INFORMATION
  Report Type: Spontaneous
  Country: US (occurrence: None)
  Receive Date: 20130130
  Receipt Date: 20130130
  Transmission Date: 20140127
  Serious: Yes (Other)
  Sender: FDA-Public Use
  Company Number: 1108392

PATIENT
  Age: 78 Year
  Sex: Female
  Weight: 77.11 kg

DRUGS (4)
  1. DIABETAID [Suspect]
     Indication: NEUROPATHY PERIPHERAL
     Dosage: TOPICAL APPLICATION?01/15/2013  TO  01/17/2013
     Route: 061
     Dates: start: 20130115, end: 20130117
  2. DEXALYN [Concomitant]
  3. GLYBURIDE [Concomitant]
  4. JANUVIA [Concomitant]

REACTIONS (2)
  - Hypoglycaemia [None]
  - Blood glucose increased [None]
